FAERS Safety Report 7782146-3 (Version None)
Quarter: 2011Q3

REPORT INFORMATION
  Report Type: 
  Country: None (occurrence: None)
  Receive Date: 20110927
  Receipt Date: 20110919
  Transmission Date: 20111222
  Serious: Yes (Other)
  Sender: FDA-Public Use
  Company Number: BR-BAYER-2011-087396

PATIENT
  Age: 47 Year
  Sex: Female
  Weight: 74 kg

DRUGS (2)
  1. AVELOX [Suspect]
     Indication: SINUSITIS
     Dosage: 400 MG, QD
     Route: 048
     Dates: start: 20110915, end: 20110917
  2. AVELOX [Suspect]
     Indication: OROPHARYNGEAL PAIN

REACTIONS (5)
  - FEELING DRUNK [None]
  - ABDOMINAL DISTENSION [None]
  - DYSPNOEA [None]
  - TREMOR [None]
  - HYPOTENSION [None]
